FAERS Safety Report 7200303-1 (Version None)
Quarter: 2010Q4

REPORT INFORMATION
  Report Type: 
  Country: None (occurrence: None)
  Receive Date: 20101228
  Receipt Date: 20101221
  Transmission Date: 20110411
  Serious: Yes (Death, Other)
  Sender: FDA-Public Use
  Company Number: B0690297B

PATIENT
  Sex: Female

DRUGS (5)
  1. CLAMOXYL [Suspect]
     Indication: STREPTOCOCCAL INFECTION
     Dosage: 1G PER DAY
     Dates: start: 20080401, end: 20080401
  2. SOLUDECADRON [Concomitant]
     Dates: start: 20080401, end: 20080401
  3. PRIMPERAN TAB [Concomitant]
     Dates: start: 20080401, end: 20080401
  4. EPHEDRINE [Concomitant]
     Dates: start: 20080401, end: 20080401
  5. PROSTIN E2 [Concomitant]
     Dates: start: 20080401, end: 20080401

REACTIONS (4)
  - DEATH NEONATAL [None]
  - DRUG EXPOSURE DURING PREGNANCY [None]
  - FOETAL HEART RATE ABNORMAL [None]
  - MATERNAL DRUGS AFFECTING FOETUS [None]
